FAERS Safety Report 21664487 (Version 2)
Quarter: 2023Q1

REPORT INFORMATION
  Report Type: Spontaneous
  Country: JP (occurrence: JP)
  Receive Date: 20221130
  Receipt Date: 20230207
  Transmission Date: 20230418
  Serious: Yes (Other)
  Sender: FDA-Public Use
  Company Number: JP-ferring-EVA202000650FERRINGPH

PATIENT

DRUGS (2)
  1. DESMOPRESSIN ACETATE [Suspect]
     Active Substance: DESMOPRESSIN ACETATE
     Indication: Diabetes insipidus
     Dosage: 60 UG
     Route: 065
  2. DESMOPRESSIN [Suspect]
     Active Substance: DESMOPRESSIN
     Indication: Diabetes insipidus
     Dosage: UNK
     Route: 065
     Dates: start: 1985

REACTIONS (6)
  - Spinal ligament ossification [Unknown]
  - Hypopituitarism [Unknown]
  - Micturition disorder [Unknown]
  - Oedema [Unknown]
  - Wrong technique in product usage process [Unknown]
  - Drug ineffective [Unknown]
